FAERS Safety Report 5257527-2 (Version None)
Quarter: 2007Q1

REPORT INFORMATION
  Report Type: 
  Country: None (occurrence: None)
  Receive Date: 20070307
  Receipt Date: 20060906
  Transmission Date: 20070707
  Serious: No
  Sender: FDA-Public Use
  Company Number: US-GLAXOSMITHKLINE-A0619140A

PATIENT
  Sex: Female

DRUGS (7)
  1. REQUIP [Suspect]
  2. KERLONE [Concomitant]
  3. SYNTHROID [Concomitant]
  4. PROGESTERONE [Concomitant]
  5. ESTRACE [Concomitant]
  6. CELEXA [Concomitant]
  7. HYDROCODONE [Concomitant]

REACTIONS (2)
  - DRUG INTERACTION [None]
  - NAUSEA [None]
